FAERS Safety Report 16939314 (Version 1)
Quarter: 2019Q4

REPORT INFORMATION
  Report Type: Spontaneous
  Country: US (occurrence: US)
  Receive Date: 20191021
  Receipt Date: 20191021
  Transmission Date: 20200122
  Serious: No
  Sender: FDA-Public Use
  Company Number: US-TEVA-2019-US-1123229

PATIENT
  Age: 68 Year
  Sex: Female
  Weight: 71 kg

DRUGS (4)
  1. ALBUTEROL SULFATE HFA [Suspect]
     Active Substance: ALBUTEROL SULFATE
     Indication: DYSPNOEA
  2. ALBUTEROL SULFATE HFA [Suspect]
     Active Substance: ALBUTEROL SULFATE
     Indication: WHEEZING
     Dosage: TWO PUFFS EVERY FOUR HOURS
     Route: 055
     Dates: start: 20191010
  3. AZELASTINE NASAL SPRAY [Concomitant]
     Active Substance: AZELASTINE
     Indication: COUGH
     Route: 065
  4. NEOMED SINUS RINSE [Concomitant]
     Indication: SINUSITIS
     Route: 065

REACTIONS (4)
  - Chest discomfort [Unknown]
  - Inappropriate schedule of product administration [Unknown]
  - Tinnitus [Not Recovered/Not Resolved]
  - Insomnia [Recovered/Resolved]

NARRATIVE: CASE EVENT DATE: 20191010
